FAERS Safety Report 6836028-1 (Version None)
Quarter: 2010Q3

REPORT INFORMATION
  Report Type: 
  Country: None (occurrence: None)
  Receive Date: 20100713
  Receipt Date: 20100705
  Transmission Date: 20110219
  Serious: Yes (Hospitalization, Other)
  Sender: FDA-Public Use
  Company Number: B0615315A

PATIENT
  Age: 73 Year
  Sex: Female

DRUGS (9)
  1. ZANTAC [Suspect]
     Indication: PRODUCT USED FOR UNKNOWN INDICATION
     Dosage: 300MG PER DAY
     Route: 048
     Dates: start: 20091103
  2. EMCOR [Concomitant]
  3. CARDURA [Concomitant]
  4. NU-SEALS ASPIRIN [Concomitant]
  5. COZAAR [Concomitant]
  6. ZESTORETIC [Concomitant]
  7. LIPITOR [Concomitant]
  8. NITROLINGUAL [Concomitant]
  9. PLAVIX [Concomitant]

REACTIONS (16)
  - ABDOMINAL PAIN UPPER [None]
  - ASTHENIA [None]
  - BLOOD CREATININE INCREASED [None]
  - BLOOD UREA INCREASED [None]
  - BREATH ODOUR [None]
  - C-REACTIVE PROTEIN INCREASED [None]
  - FACE OEDEMA [None]
  - GASTRITIS [None]
  - HEADACHE [None]
  - HYPERSENSITIVITY [None]
  - NAUSEA [None]
  - NEUTROPHIL COUNT INCREASED [None]
  - RASH ERYTHEMATOUS [None]
  - RASH PRURITIC [None]
  - URINARY TRACT INFECTION [None]
  - WHITE BLOOD CELL COUNT INCREASED [None]
